FAERS Safety Report 8208133-9 (Version None)
Quarter: 2012Q1

REPORT INFORMATION
  Report Type: 
  Country: None (occurrence: None)
  Receive Date: 20120314
  Receipt Date: 20120307
  Transmission Date: 20120608
  Serious: Yes (Other)
  Sender: FDA-Public Use
  Company Number: PHHY2012MX016749

PATIENT
  Sex: Male

DRUGS (6)
  1. HALDOL [Concomitant]
     Dosage: 10 DRP, DAILY
     Dates: start: 20060201
  2. RISPERDAL [Concomitant]
     Dosage: 0.5 D PER DAY
     Dates: start: 20110101
  3. TEGRETOL [Suspect]
     Indication: EPILEPSY
     Dosage: 400 MG DAILY (2 TABLETS)
     Dates: start: 19850501
  4. TEGRETOL [Suspect]
     Dosage: 800 MG DAILY (2 TABLETS)
  5. CARBOLIT [Concomitant]
     Dosage: 2 DF DAILY
     Dates: start: 20100201
  6. CLONAZEPAM [Concomitant]
     Indication: NERVOUSNESS
     Dosage: 1.5 DF PER DAY
     Dates: start: 19850501

REACTIONS (2)
  - ANKLE FRACTURE [None]
  - BRONCHITIS [None]
